FAERS Safety Report 14545706 (Version 1)
Quarter: 2018Q1

REPORT INFORMATION
  Report Type: Spontaneous
  Country: IT (occurrence: IT)
  Receive Date: 20180219
  Receipt Date: 20180219
  Transmission Date: 20180509
  Serious: Yes (Hospitalization)
  Sender: FDA-Public Use
  Company Number: IT-ROCHE-2069351

PATIENT
  Age: 62 Year
  Sex: Female

DRUGS (5)
  1. VINORELBINE [Concomitant]
     Active Substance: VINORELBINE\VINORELBINE TARTRATE
     Route: 065
  2. ENDOXAN BAXTER [Suspect]
     Active Substance: CYCLOPHOSPHAMIDE
     Indication: PRODUCT USED FOR UNKNOWN INDICATION
     Route: 065
     Dates: start: 20171109, end: 20171109
  3. DEPAKIN [Concomitant]
     Active Substance: VALPROATE SODIUM
     Route: 065
  4. GARDENALE [Concomitant]
     Active Substance: PHENOBARBITAL
     Route: 065
  5. XELODA [Suspect]
     Active Substance: CAPECITABINE
     Indication: NEOPLASM MALIGNANT
     Route: 048
     Dates: start: 20171109, end: 20171109

REACTIONS (3)
  - Generalised erythema [Recovering/Resolving]
  - Flushing [Recovering/Resolving]
  - Pruritus generalised [Recovering/Resolving]

NARRATIVE: CASE EVENT DATE: 20171110
